FAERS Safety Report 5470984-1 (Version None)
Quarter: 2007Q3

REPORT INFORMATION
  Report Type: 
  Country: None (occurrence: None)
  Receive Date: 20070928
  Receipt Date: 20070924
  Transmission Date: 20080115
  Serious: Yes (Other)
  Sender: FDA-Public Use
  Company Number: A0678866A

PATIENT
  Age: 64 Year
  Sex: Male

DRUGS (2)
  1. ARIXTRA [Suspect]
     Dosage: 2.5MG PER DAY
     Route: 058
     Dates: start: 20070818, end: 20070828
  2. SIMVASTATIN [Concomitant]
     Dosage: 40MG PER DAY
     Route: 048

REACTIONS (3)
  - HAEMARTHROSIS [None]
  - INCISION SITE HAEMATOMA [None]
  - JOINT EFFUSION [None]
